FAERS Safety Report 7730368-X (Version None)
Quarter: 2011Q3

REPORT INFORMATION
  Report Type: 
  Country: None (occurrence: None)
  Receive Date: 20110906
  Receipt Date: 20110627
  Transmission Date: 20111222
  Serious: Yes (Hospitalization)
  Sender: FDA-Public Use
  Company Number: US-GLAXOSMITHKLINE-A0934078A

PATIENT
  Age: 27 Year
  Sex: Female

DRUGS (4)
  1. LAMOTRIGINE [Suspect]
     Indication: BIPOLAR DISORDER
     Dosage: 25MG TWICE PER DAY
     Route: 048
     Dates: start: 20090507, end: 20090522
  2. TRAZODONE HCL [Concomitant]
     Indication: BIPOLAR DISORDER
     Dosage: 50MG AT NIGHT
     Route: 048
     Dates: start: 20090507
  3. LAMICTAL [Suspect]
     Indication: BIPOLAR DISORDER
     Route: 048
     Dates: start: 20090507, end: 20090522
  4. PAXIL [Concomitant]
     Indication: BIPOLAR DISORDER
     Dosage: 20MG PER DAY
     Route: 048
     Dates: start: 20090507, end: 20090522

REACTIONS (2)
  - TOXIC EPIDERMAL NECROLYSIS [None]
  - STEVENS-JOHNSON SYNDROME [None]
